FAERS Safety Report 23710972 (Version 2)
Quarter: 2025Q2

REPORT INFORMATION
  Report Type: Spontaneous
  Country: US (occurrence: US)
  Receive Date: 20240405
  Receipt Date: 20250403
  Transmission Date: 20250716
  Serious: No
  Sender: ACCORD
  Company Number: US-Accord-394412

PATIENT
  Age: 40 Year
  Sex: Female

DRUGS (4)
  1. CARBOPLATIN [Suspect]
     Active Substance: CARBOPLATIN
     Indication: Breast cancer
     Dosage: NUMBER OF CYCLES: 6?FREQUENCY : EVERY 3 WEEKS
     Dates: start: 20201125, end: 20210309
  2. DOCETAXEL [Suspect]
     Active Substance: DOCETAXEL
     Indication: Breast cancer
     Dosage: NUMBER OF CYCLE: 6?FREQUENCY: EVERY 3 WEEKS
     Dates: start: 20201125, end: 20210309
  3. PERJETA [Suspect]
     Active Substance: PERTUZUMAB
     Indication: Breast cancer
     Dosage: NUMBER OF CYCLES: 6?FREQUENCY: EVERY 3 WEEKS
     Dates: start: 20201125, end: 20210309
  4. HERCEPTIN [Suspect]
     Active Substance: TRASTUZUMAB
     Indication: Breast cancer
     Dosage: NUMBER OF CYCLE: 6?FREQUENCY: EVERY 3 WEEKS
     Dates: start: 20201125, end: 20210309

REACTIONS (3)
  - Dacryostenosis acquired [Not Recovered/Not Resolved]
  - Dry eye [Recovered/Resolved]
  - Off label use [Unknown]

NARRATIVE: CASE EVENT DATE: 20210301
